FAERS Safety Report 23963865 (Version 3)
Quarter: 2024Q4

REPORT INFORMATION
  Report Type: Spontaneous
  Country: JP (occurrence: JP)
  Receive Date: 20240611
  Receipt Date: 20241016
  Transmission Date: 20250115
  Serious: Yes (Hospitalization)
  Sender: BAYER HEALTHCARE PHARMACEUTICALS INC.
  Company Number: JP-BAYER-2024A084259

PATIENT
  Age: 81 Year
  Sex: Male

DRUGS (2)
  1. XOFIGO [Suspect]
     Active Substance: RADIUM RA-223 DICHLORIDE
     Indication: Hormone-refractory prostate cancer
     Dosage: 3 TIMES
     Dates: start: 20240326, end: 20240521
  2. XOFIGO [Suspect]
     Active Substance: RADIUM RA-223 DICHLORIDE
     Indication: Metastases to bone

REACTIONS (3)
  - Prostate cancer [Not Recovered/Not Resolved]
  - Pain [Recovering/Resolving]
  - Adverse event [None]

NARRATIVE: CASE EVENT DATE: 20240521
